FAERS Safety Report 18280117 (Version 2)
Quarter: 2021Q2

REPORT INFORMATION
  Report Type: Other
  Country: US (occurrence: US)
  Receive Date: 20200918
  Receipt Date: 20210429
  Transmission Date: 20210717
  Serious: Yes (Other)
  Sender: FDA-Public Use
  Company Number: US-ROCHE-2677984

PATIENT
  Sex: Male

DRUGS (1)
  1. ALECENSA [Suspect]
     Active Substance: ALECTINIB HYDROCHLORIDE
     Indication: BRONCHIAL CARCINOMA
     Dosage: TAKE 3 TABLET(S) BY MOUTH TWICE A DAY
     Route: 048

REACTIONS (3)
  - Feeling abnormal [Unknown]
  - Back pain [Unknown]
  - Neoplasm malignant [Unknown]
